FAERS Safety Report 4657909-3 (Version None)
Quarter: 2005Q2

REPORT INFORMATION
  Report Type: 
  Country: None (occurrence: None)
  Receive Date: 20050510
  Receipt Date: 20050503
  Transmission Date: 20051028
  Serious: Yes (Hospitalization)
  Sender: FDA-Public Use
  Company Number: GB-ROCHE-403882

PATIENT
  Age: 63 Year
  Sex: Male

DRUGS (11)
  1. CELLCEPT [Suspect]
     Indication: PYODERMA GANGRENOSUM
     Route: 065
  2. METHOTREXATE [Suspect]
     Indication: PYODERMA GANGRENOSUM
     Route: 048
  3. METHYLPREDNISOLONE [Suspect]
     Indication: PYODERMA GANGRENOSUM
     Route: 042
  4. PREDNISOLONE [Suspect]
     Indication: PYODERMA GANGRENOSUM
     Route: 048
  5. CLOBETASOL [Suspect]
     Indication: PYODERMA GANGRENOSUM
     Route: 061
  6. IMMUNE GLOBULIN INTRAVENOUS (HUMAN) [Suspect]
     Indication: PYODERMA GANGRENOSUM
     Dosage: 2 MG/KG PER CYCLE, 2 CYCLES IN TOTAL.
     Route: 042
  7. CYCLOSPORINE [Suspect]
     Indication: PYODERMA GANGRENOSUM
     Route: 065
  8. THALIDOMIDE [Suspect]
     Indication: PYODERMA GANGRENOSUM
     Route: 065
  9. KENALOG [Suspect]
     Indication: PYODERMA GANGRENOSUM
     Route: 050
  10. CLOFAZIMINE [Suspect]
     Indication: PYODERMA GANGRENOSUM
     Route: 065
  11. FILGRASTIM [Suspect]
     Indication: PYODERMA GANGRENOSUM
     Route: 058

REACTIONS (8)
  - CUSHINGOID [None]
  - DIABETES MELLITUS [None]
  - DRUG INEFFECTIVE [None]
  - HAEMOGLOBIN DECREASED [None]
  - IATROGENIC INJURY [None]
  - PEPTIC ULCER PERFORATION [None]
  - PERITONITIS [None]
  - WOUND DEHISCENCE [None]
